FAERS Safety Report 5881222-X (Version None)
Quarter: 2008Q3

REPORT INFORMATION
  Report Type: 
  Country: None (occurrence: None)
  Receive Date: 20080911
  Receipt Date: 20080903
  Transmission Date: 20090109
  Serious: Yes (Hospitalization)
  Sender: FDA-Public Use
  Company Number: TPA2008A01401

PATIENT
  Age: 34 Year
  Sex: Female
  Weight: 81.6475 kg

DRUGS (9)
  1. ACTOS [Suspect]
     Indication: TYPE 2 DIABETES MELLITUS
     Dosage: 45 MG, 1 IN 1 D, PER ORAL
     Route: 048
     Dates: start: 20050101, end: 20080803
  2. GLIMEPIRIDE [Suspect]
     Indication: DIABETES MELLITUS
     Dates: start: 20080820, end: 20080823
  3. GLIMEPIRIDE [Suspect]
     Indication: DIABETES MELLITUS INADEQUATE CONTROL
     Dates: start: 20080820, end: 20080823
  4. LIPITOR [Concomitant]
  5. PLAVIX [Concomitant]
  6. LISINOPRIL [Concomitant]
  7. ECOTRIN (ACETYLSALICYLIC ACID) (TABLETS) [Concomitant]
  8. ATENOLOL [Concomitant]
  9. PAXIL [Concomitant]

REACTIONS (3)
  - BLOOD GLUCOSE DECREASED [None]
  - DIABETES MELLITUS INADEQUATE CONTROL [None]
  - MYOCARDIAL INFARCTION [None]
